FAERS Safety Report 7253186 (Version 2)
Quarter: 2014Q1

REPORT INFORMATION
  Report Type: Spontaneous
  Country: US (occurrence: None)
  Receive Date: 20100113
  Receipt Date: 20140127
  Transmission Date: 20141002
  Serious: Yes (Other)
  Sender: FDA-Public Use
  Company Number: 2010S1000009

PATIENT
  Age: 60 Year
  Sex: Female
  Weight: 76.2 kg

DRUGS (7)
  1. FLEET PHOSPHO-SODA [Suspect]
     Indication: COLONOSCOPY
     Dosage: PO
     Route: 048
     Dates: start: 20081207, end: 20081208
  2. FLEET ENEMA [Suspect]
     Indication: COLONOSCOPY
     Route: 054
     Dates: start: 20081208, end: 20081208
  3. LISINOPRIL/HCTZ(HYDROCHLOROTHIAZIDE, LISINOPRIL) [Concomitant]
  4. ASPIRIN (ACETYLSALICYLIC ACID) [Concomitant]
  5. METFORMIN (METFORMIN) [Concomitant]
  6. ALLEGRA (FEXOFENDADINE HYDROCHLORIDE) [Concomitant]
  7. CALTRATE WITH D (COLECALCIFEROL, CALCIUM CARBONATE) [Concomitant]

REACTIONS (9)
  - Renal impairment [None]
  - Abdominal pain [None]
  - Discomfort [None]
  - Diarrhoea [None]
  - Decreased appetite [None]
  - Post procedural complication [None]
  - Renal failure acute [None]
  - Acute phosphate nephropathy [None]
  - Nephrogenic anaemia [None]
